FAERS Safety Report 21285921 (Version 1)
Quarter: 2022Q3

REPORT INFORMATION
  Report Type: Spontaneous
  Country: ES (occurrence: ES)
  Receive Date: 20220902
  Receipt Date: 20220902
  Transmission Date: 20221026
  Serious: Yes (Hospitalization)
  Sender: FDA-Public Use
  Company Number: None

PATIENT
  Age: 61 Year
  Sex: Male

DRUGS (6)
  1. PEMETREXED [Suspect]
     Active Substance: PEMETREXED
     Indication: Lung adenocarcinoma
     Dosage: 1000 MG EFG 1 VIAL, 1190 MG EVERY 21 DAYS
     Dates: start: 20220621, end: 20220704
  2. FENTANYL [Concomitant]
     Active Substance: FENTANYL
     Indication: Pain
     Dosage: 1 EVERY 72 HOURS, 75 MICROGRAMS / HOUR, 5 PATCHES
     Dates: start: 20220404
  3. CARBOPLATIN [Concomitant]
     Active Substance: CARBOPLATIN
     Indication: Lung adenocarcinoma
     Dosage: 10 MG/ML, 1 VIAL OF 45 ML, 350 MG EVERY 21 DAYS
     Dates: start: 20220621, end: 20220704
  4. CARVEDILOL ALTER [Concomitant]
     Indication: Hypertension
     Dosage: 25 MG EVERY 24 H, 28 TABLETS
     Dates: start: 2021
  5. LEVOTHYROXINE SODIUM [Concomitant]
     Active Substance: LEVOTHYROXINE SODIUM
     Indication: Hypothyroidism
     Dosage: 25 MCG EVERY 24 H, 100 TABLETS
     Dates: start: 2020
  6. RAMIPRIL [Concomitant]
     Active Substance: RAMIPRIL
     Indication: Hypertension
     Dosage: 2.5 MG EVERY 24H  EFG, 28 TABLETS
     Dates: start: 2021

REACTIONS (1)
  - Toxic skin eruption [Recovering/Resolving]

NARRATIVE: CASE EVENT DATE: 20220701
